FAERS Safety Report 6527298-8 (Version None)
Quarter: 2010Q1

REPORT INFORMATION
  Report Type: 
  Country: None (occurrence: None)
  Receive Date: 20100105
  Receipt Date: 20090108
  Transmission Date: 20100710
  Serious: No
  Sender: FDA-Public Use
  Company Number: US-TYCO HEALTHCARE/MALLINCKRODT-T200900036

PATIENT
  Age: 38 Year
  Sex: Female
  Weight: 64.399 kg

DRUGS (1)
  1. OPTIMARK [Suspect]
     Indication: NUCLEAR MAGNETIC RESONANCE IMAGING
     Dosage: 20 ML, SINGLE
     Route: 042
     Dates: start: 20090108, end: 20090108

REACTIONS (1)
  - MICTURITION URGENCY [None]
